FAERS Safety Report 7501191-6 (Version None)
Quarter: 2011Q2

REPORT INFORMATION
  Report Type: 
  Country: None (occurrence: None)
  Receive Date: 20110524
  Receipt Date: 20110511
  Transmission Date: 20111010
  Serious: Yes (Other)
  Sender: FDA-Public Use
  Company Number: US-UCBSA-031750

PATIENT
  Sex: Female

DRUGS (2)
  1. CIMZIA [Suspect]
     Indication: RHEUMATOID ARTHRITIS
     Dosage: 2 SHOTS
     Route: 058
     Dates: start: 20110101, end: 20110101
  2. CIMZIA [Suspect]
     Dosage: ONE SHOT
     Route: 058
     Dates: start: 20110323, end: 20110323

REACTIONS (5)
  - RASH GENERALISED [None]
  - URINARY TRACT INFECTION [None]
  - SKIN DISORDER [None]
  - SKIN EXFOLIATION [None]
  - CANDIDIASIS [None]
